FAERS Safety Report 21740247 (Version 1)
Quarter: 2022Q4

REPORT INFORMATION
  Report Type: Report from Study
  Country: US (occurrence: US)
  Receive Date: 20221216
  Receipt Date: 20221216
  Transmission Date: 20230112
  Serious: No
  Sender: FDA-Public Use
  Company Number: US-ABBVIE-4239519

PATIENT
  Age: 82 Year
  Sex: Female

DRUGS (7)
  1. VENCLEXTA [Suspect]
     Active Substance: VENETOCLAX
     Indication: Acute myeloid leukaemia
     Route: 048
     Dates: end: 20221213
  2. FLONASE SENSIMIST ALLERGY RELIEF [Concomitant]
     Active Substance: FLUTICASONE FUROATE
     Indication: Product used for unknown indication
     Dosage: NASAL SUSPENSION
  3. Zinc-Vitamin C [Concomitant]
     Indication: Product used for unknown indication
     Dosage: 40-90 M
     Route: 048
  4. Vitamin D3 Super Strength [Concomitant]
     Indication: Product used for unknown indication
     Route: 048
  5. PAROXETINE HYDROCHLORIDE [Concomitant]
     Active Substance: PAROXETINE HYDROCHLORIDE
     Indication: Product used for unknown indication
     Route: 048
  6. XALATAN [Concomitant]
     Active Substance: LATANOPROST
     Indication: Product used for unknown indication
     Dosage: 0.005 %
  7. CENTRUM VITAMINTS [Concomitant]
     Indication: Product used for unknown indication
     Route: 048

REACTIONS (4)
  - Laboratory test abnormal [Unknown]
  - Peripheral swelling [Not Recovered/Not Resolved]
  - Fluid retention [Unknown]
  - Fatigue [Unknown]

NARRATIVE: CASE EVENT DATE: 20221213
